FAERS Safety Report 18743532 (Version 1)
Quarter: 2021Q1

REPORT INFORMATION
  Report Type: Spontaneous
  Country: US (occurrence: US)
  Receive Date: 20210115
  Receipt Date: 20210115
  Transmission Date: 20210419
  Serious: No
  Sender: FDA-Public Use
  Company Number: US-009507513-2012USA013205

PATIENT
  Age: 32 Year
  Sex: Female

DRUGS (3)
  1. COZAAR [Suspect]
     Active Substance: LOSARTAN POTASSIUM
     Indication: ACUTE KIDNEY INJURY
     Dosage: UNK
  2. COZAAR [Suspect]
     Active Substance: LOSARTAN POTASSIUM
     Indication: THROMBOTIC MICROANGIOPATHY
     Dosage: 100 MILLIGRAM, QD
     Dates: end: 201605
  3. COZAAR [Suspect]
     Active Substance: LOSARTAN POTASSIUM
     Indication: RENAL TUBULAR NECROSIS
     Dosage: UNK

REACTIONS (1)
  - Product use in unapproved indication [Unknown]
